FAERS Safety Report 8184183-6 (Version None)
Quarter: 2012Q1

REPORT INFORMATION
  Report Type: 
  Country: None (occurrence: None)
  Receive Date: 20120305
  Receipt Date: 20120223
  Transmission Date: 20120608
  Serious: No
  Sender: FDA-Public Use
  Company Number: US-JNJFOC-20120213176

PATIENT
  Age: 58 Year
  Sex: Female

DRUGS (2)
  1. XANAX [Concomitant]
     Route: 048
  2. INVEGA SUSTENNA [Suspect]
     Indication: SCHIZOPHRENIA
     Route: 030
     Dates: start: 20100801

REACTIONS (2)
  - DRUG DOSE OMISSION [None]
  - DEVICE LEAKAGE [None]
